FAERS Safety Report 6583650-6 (Version None)
Quarter: 2010Q1

REPORT INFORMATION
  Report Type: 
  Country: None (occurrence: None)
  Receive Date: 20100213
  Receipt Date: 20100213
  Transmission Date: 20100710
  Serious: Yes (Other)
  Sender: FDA-Public Use
  Company Number: None

PATIENT
  Age: 39 Year
  Sex: Female
  Weight: 56.6996 kg

DRUGS (3)
  1. METOCLOPRAMIDE [Suspect]
     Indication: ABDOMINAL PAIN
     Dosage: ONE TABLET EVERY 6 HOURS PRN ABD. PAIN.NAUSEA/Y PO
     Route: 048
     Dates: start: 20091112, end: 20100111
  2. METOCLOPRAMIDE [Suspect]
     Indication: NAUSEA
     Dosage: ONE TABLET EVERY 6 HOURS PRN ABD. PAIN.NAUSEA/Y PO
     Route: 048
     Dates: start: 20091112, end: 20100111
  3. METOCLOPRAMIDE [Suspect]
     Indication: VOMITING
     Dosage: ONE TABLET EVERY 6 HOURS PRN ABD. PAIN.NAUSEA/Y PO
     Route: 048
     Dates: start: 20091112, end: 20100111

REACTIONS (5)
  - BALANCE DISORDER [None]
  - MOVEMENT DISORDER [None]
  - NECK PAIN [None]
  - SWELLING [None]
  - VESTIBULAR DISORDER [None]
